FAERS Safety Report 16872345 (Version 1)
Quarter: 2019Q4

REPORT INFORMATION
  Report Type: Spontaneous
  Country: US (occurrence: US)
  Receive Date: 20190807
  Receipt Date: 20190807
  Transmission Date: 20200122
  Serious: No
  Sender: FDA-Public Use
  Company Number: None

PATIENT
  Age: 78 Year
  Sex: Male

DRUGS (1)
  1. PROLIA [Suspect]
     Active Substance: DENOSUMAB
     Indication: OSTEOPOROSIS
     Dosage: ?          OTHER FREQUENCY:EVERY 6 MONTHS;?
     Route: 058
     Dates: start: 20190302

REACTIONS (9)
  - Back pain [None]
  - Influenza like illness [None]
  - Pruritus [None]
  - Constipation [None]
  - Diarrhoea [None]
  - Asthenia [None]
  - Abdominal pain [None]
  - Myalgia [None]
  - Dry skin [None]

NARRATIVE: CASE EVENT DATE: 20190303
